FAERS Safety Report 4503015-8 (Version None)
Quarter: 2004Q4

REPORT INFORMATION
  Report Type: 
  Country: None (occurrence: None)
  Receive Date: 20041112
  Receipt Date: 20041029
  Transmission Date: 20050328
  Serious: Yes (Other)
  Sender: FDA-Public Use
  Company Number: CIP04001903

PATIENT
  Age: 71 Year
  Sex: Female

DRUGS (2)
  1. RISEDRONATE (RISEDRONATE SODIUM) TABLET, 10 MG [Suspect]
     Dosage: 35 MG ONCE WEEKLY, ORAL
     Route: 048
     Dates: start: 20040517, end: 20040531
  2. KESSAR (TAMOXIFEN CITRATE) [Concomitant]

REACTIONS (1)
  - DIPLOPIA [None]
